FAERS Safety Report 20706289 (Version 2)
Quarter: 2022Q2

REPORT INFORMATION
  Report Type: Report from Study
  Country: US (occurrence: US)
  Receive Date: 20220413
  Receipt Date: 20220428
  Transmission Date: 20220721
  Serious: Yes (Other)
  Sender: FDA-Public Use
  Company Number: US-BAYER-2022A046670

PATIENT
  Age: 62 Year
  Sex: Female
  Weight: 61.224 kg

DRUGS (2)
  1. ADEMPAS [Suspect]
     Active Substance: RIOCIGUAT
     Indication: Pulmonary arterial hypertension
     Dosage: 0.5 MG, TID
     Route: 048
     Dates: start: 20220315, end: 20220324
  2. ELIQUIS [Concomitant]
     Active Substance: APIXABAN

REACTIONS (7)
  - Presyncope [None]
  - Hypotension [None]
  - Dyspnoea [None]
  - Headache [Not Recovered/Not Resolved]
  - Diarrhoea [None]
  - Retching [None]
  - Dyspnoea exertional [None]
